FAERS Safety Report 23747652 (Version 1)
Quarter: 2024Q2

REPORT INFORMATION
  Report Type: Spontaneous
  Country: US (occurrence: None)
  Receive Date: 20240416
  Receipt Date: 20240416
  Transmission Date: 20240716
  Serious: No
  Sender: FDA-Public Use
  Company Number: None

PATIENT
  Sex: Male
  Weight: 99.2 kg

DRUGS (1)
  1. VYXEOS [Suspect]
     Active Substance: CYTARABINE\DAUNORUBICIN
     Dates: end: 20240228

REACTIONS (3)
  - Sepsis [None]
  - Febrile neutropenia [None]
  - Escherichia infection [None]

NARRATIVE: CASE EVENT DATE: 20240310
